FAERS Safety Report 16008834 (Version 1)
Quarter: 2019Q1

REPORT INFORMATION
  Report Type: Spontaneous
  Country: FR (occurrence: FR)
  Receive Date: 20190226
  Receipt Date: 20190226
  Transmission Date: 20190418
  Serious: Yes (Hospitalization)
  Sender: FDA-Public Use
  Company Number: FR-LUNDBECK-DKLU2061075

PATIENT
  Age: 27 Year
  Sex: Female

DRUGS (2)
  1. CLOBAZAM. [Suspect]
     Active Substance: CLOBAZAM
     Indication: EPILEPSY
     Route: 048
  2. LEVETIRACETAM. [Suspect]
     Active Substance: LEVETIRACETAM
     Indication: EPILEPSY
     Route: 048
     Dates: start: 20190116

REACTIONS (3)
  - Dystonia [Unknown]
  - Psychomotor skills impaired [Unknown]
  - Affect lability [Recovering/Resolving]

NARRATIVE: CASE EVENT DATE: 20190116
